FAERS Safety Report 9100133 (Version 2)
Quarter: 2014Q2

REPORT INFORMATION
  Report Type: Report from Study
  Country: BR (occurrence: BR)
  Receive Date: 20130215
  Receipt Date: 20140630
  Transmission Date: 20141212
  Serious: Yes (Other)
  Sender: FDA-Public Use
  Company Number: BR-009507513-1302BRA005214

PATIENT
  Age: 71 Year
  Sex: Male
  Weight: 64.5 kg

DRUGS (5)
  1. SIMVASTATIN [Suspect]
     Indication: ACUTE CORONARY SYNDROME
     Dosage: 40 MG, QD
     Route: 048
     Dates: start: 20080924
  2. CAPTOPRIL [Concomitant]
     Dosage: 75 MG, QD
     Route: 048
     Dates: start: 20080919
  3. ASPIRIN [Concomitant]
     Dosage: 100 MG, QD
     Route: 048
     Dates: start: 20080919
  4. CARVEDILOL [Concomitant]
     Dosage: 50 MG, QD
     Route: 048
     Dates: start: 20080919
  5. OMEPRAZOLE [Concomitant]
     Dosage: 20 MG, QD
     Route: 048
     Dates: start: 20110120

REACTIONS (1)
  - Neoplasm prostate [Not Recovered/Not Resolved]
